FAERS Safety Report 19953630 (Version 1)
Quarter: 2021Q4

REPORT INFORMATION
  Report Type: Spontaneous
  Country: US (occurrence: US)
  Receive Date: 20211014
  Receipt Date: 20211014
  Transmission Date: 20220303
  Serious: Yes (Hospitalization, Other)
  Sender: FDA-Public Use
  Company Number: US-SCIEGEN-2021SCILIT00101

PATIENT
  Age: 62 Year
  Sex: Female

DRUGS (2)
  1. METFORMIN HYDROCHLORIDE [Suspect]
     Active Substance: METFORMIN HYDROCHLORIDE
     Indication: Product used for unknown indication
     Route: 048
  2. SODIUM BICARBONATE [Interacting]
     Active Substance: SODIUM BICARBONATE
     Route: 065

REACTIONS (6)
  - Overdose [Unknown]
  - Hyperglycaemia [Recovering/Resolving]
  - Suicide attempt [Unknown]
  - Metabolic acidosis [Recovering/Resolving]
  - Lactic acidosis [Not Recovered/Not Resolved]
  - Hypotension [Unknown]
